FAERS Safety Report 9612937 (Version 1)
Quarter: 2013Q4

REPORT INFORMATION
  Report Type: Spontaneous
  Country: US (occurrence: US)
  Receive Date: 20131010
  Receipt Date: 20131010
  Transmission Date: 20140711
  Serious: Yes (Other)
  Sender: FDA-Public Use
  Company Number: US-MYLANLABS-2013S1021994

PATIENT
  Age: 73 Year
  Sex: Male

DRUGS (2)
  1. AZATHIOPRINE [Suspect]
     Indication: POLYCHONDRITIS
     Dosage: 100 MG DAILY
     Route: 065
  2. PREDNISONE [Concomitant]
     Indication: POLYCHONDRITIS
     Dosage: 10MG DAILY; LONG-TERM
     Route: 065

REACTIONS (8)
  - Thrombocytopenia [Recovered/Resolved]
  - Toxicity to various agents [Recovering/Resolving]
  - Renal failure acute [Recovered/Resolved]
  - Proteinuria [Recovered/Resolved]
  - Haematuria [Unknown]
  - Hepatic enzyme increased [Recovered/Resolved]
  - Pyrexia [Recovered/Resolved]
  - Anaemia [Unknown]
